FAERS Safety Report 18792545 (Version 2)
Quarter: 2021Q1

REPORT INFORMATION
  Report Type: Spontaneous
  Country: PL (occurrence: PL)
  Receive Date: 20210127
  Receipt Date: 20210203
  Transmission Date: 20210419
  Serious: Yes (Disabling, Other)
  Sender: FDA-Public Use
  Company Number: PL-ASTRAZENECA-2021A010120

PATIENT
  Age: 20312 Day
  Sex: Female
  Weight: 77 kg

DRUGS (6)
  1. ASARIS [Concomitant]
     Indication: ASTHMA
     Dosage: 500/50 MG , TWO TIMES A DAY
     Route: 055
     Dates: start: 2000
  2. ATROVENT [Concomitant]
     Active Substance: IPRATROPIUM BROMIDE
     Indication: ASTHMA
     Route: 055
     Dates: start: 2000
  3. FASENRA [Suspect]
     Active Substance: BENRALIZUMAB
     Indication: ASTHMA
     Dosage: 30 MG EVERY 4 WEEKS, AND THEN EVERY 8 WEEKS
     Route: 058
     Dates: start: 20190817, end: 20201211
  4. THEOSPIREX [Concomitant]
     Active Substance: THEOPHYLLINE ANHYDROUS
     Indication: ASTHMA
     Dosage: 1 X 300 MG
     Route: 048
     Dates: start: 2000
  5. VENTOLIN [Concomitant]
     Active Substance: ALBUTEROL SULFATE
     Indication: ASTHMA
     Route: 055
     Dates: start: 2000
  6. MONTELUKAST [Concomitant]
     Active Substance: MONTELUKAST SODIUM
     Indication: ASTHMA
     Dosage: 10 MG IN THE EVENING
     Route: 048
     Dates: start: 2000

REACTIONS (1)
  - Colorectal cancer [Not Recovered/Not Resolved]

NARRATIVE: CASE EVENT DATE: 20201221
